FAERS Safety Report 25418303 (Version 1)
Quarter: 2025Q2

REPORT INFORMATION
  Report Type: Spontaneous
  Country: IL (occurrence: None)
  Receive Date: 20250610
  Receipt Date: 20250610
  Transmission Date: 20250716
  Serious: Yes (Other)
  Sender: INCYTE
  Company Number: IL-002147023-NVSC2025IL092079

PATIENT
  Age: 56 Year

DRUGS (1)
  1. RUXOLITINIB [Suspect]
     Active Substance: RUXOLITINIB
     Indication: Myelofibrosis
     Dosage: 15 MG, QD (EVERY 12 HOURS)

REACTIONS (1)
  - Polyarthritis [Not Recovered/Not Resolved]
